FAERS Safety Report 14398191 (Version 24)
Quarter: 2020Q3

REPORT INFORMATION
  Report Type: Report from Study
  Country: US (occurrence: US)
  Receive Date: 20180116
  Receipt Date: 20200721
  Transmission Date: 20201102
  Serious: Yes (Hospitalization, Disabling, Other)
  Sender: FDA-Public Use
  Company Number: US-ACTELION-A-NJ2018-165646

PATIENT
  Age: 62 Year
  Sex: Female
  Weight: 61.22 kg

DRUGS (11)
  1. AMLODIPINE [Concomitant]
     Active Substance: AMLODIPINE BESYLATE
  2. OPSUMIT [Interacting]
     Active Substance: MACITENTAN
     Dosage: 10 MG, QD
     Route: 048
     Dates: start: 20170306
  3. HYDROCODONE [Suspect]
     Active Substance: HYDROCODONE
     Indication: PRODUCT USED FOR UNKNOWN INDICATION
     Route: 065
  4. XARELTO [Concomitant]
     Active Substance: RIVAROXABAN
  5. GABAPENTIN. [Suspect]
     Active Substance: GABAPENTIN
     Indication: PRODUCT USED FOR UNKNOWN INDICATION
     Route: 065
  6. DOXYCYCLINE. [Concomitant]
     Active Substance: DOXYCYCLINE
     Dosage: UNK
     Dates: start: 20181005
  7. OPSUMIT [Suspect]
     Active Substance: MACITENTAN
     Indication: PULMONARY HYPERTENSION
     Dosage: 10 MG, QD
     Route: 048
     Dates: start: 20170306
  8. OPSUMIT [Interacting]
     Active Substance: MACITENTAN
     Dosage: 10 MG, QD
     Route: 048
  9. UPTRAVI [Suspect]
     Active Substance: SELEXIPAG
     Indication: PULMONARY HYPERTENSION
     Dosage: 1600 MCG, BID
     Route: 048
     Dates: start: 201802
  10. UPTRAVI [Suspect]
     Active Substance: SELEXIPAG
     Dosage: 1600 MCG, BID
     Route: 048
  11. ITRACONAZOLE. [Interacting]
     Active Substance: ITRACONAZOLE
     Indication: EXPOSURE TO FUNGUS
     Dosage: UNK
     Route: 065

REACTIONS (59)
  - Chest discomfort [Unknown]
  - Interstitial lung disease [Unknown]
  - Mental status changes [Recovered/Resolved]
  - Pyrexia [Unknown]
  - Cataract [Unknown]
  - Nausea [Unknown]
  - Respiratory syncytial virus infection [Unknown]
  - Unevaluable event [Unknown]
  - Oral candidiasis [Recovered/Resolved]
  - Malaise [Unknown]
  - Mental disorder [Unknown]
  - Drug interaction [Unknown]
  - Left ventricular failure [Unknown]
  - Eye infection [Unknown]
  - Insomnia [Unknown]
  - Dizziness [Unknown]
  - Pulmonary congestion [Unknown]
  - Cough [Unknown]
  - Gastric disorder [Unknown]
  - Pneumonia [Recovered/Resolved]
  - Systemic lupus erythematosus [Unknown]
  - Loss of personal independence in daily activities [Unknown]
  - Hypotension [Recovered/Resolved]
  - Knee arthroplasty [Recovered/Resolved]
  - Transfusion [Unknown]
  - Eye disorder [Unknown]
  - Feeling abnormal [Unknown]
  - Parathyroid disorder [Unknown]
  - Wheezing [Unknown]
  - Diarrhoea [Unknown]
  - Pleurisy [Unknown]
  - Aortic valve stenosis [Unknown]
  - Lower respiratory tract infection fungal [Not Recovered/Not Resolved]
  - Laryngitis [Unknown]
  - Vocal cord disorder [Unknown]
  - Pneumocystis jirovecii pneumonia [Unknown]
  - Fungal pharyngitis [Not Recovered/Not Resolved]
  - Hip arthroplasty [Recovered/Resolved]
  - Sinus congestion [Unknown]
  - Anxiety [Unknown]
  - Nasopharyngitis [Unknown]
  - Dyspnoea [Recovering/Resolving]
  - Influenza [Recovered/Resolved]
  - Pulmonary artery dilatation [Unknown]
  - Fall [Unknown]
  - Vocal cord thickening [Unknown]
  - Dysphonia [Unknown]
  - Gastrointestinal bacterial overgrowth [Unknown]
  - Stress [Unknown]
  - Influenza like illness [Not Recovered/Not Resolved]
  - Herpes zoster [Unknown]
  - Parainfluenzae virus infection [Unknown]
  - Joint injury [Unknown]
  - Exposure to fungus [Unknown]
  - Arthropathy [Unknown]
  - Seasonal allergy [Unknown]
  - Dry throat [Unknown]
  - Sinusitis [Not Recovered/Not Resolved]
  - Pain [Unknown]

NARRATIVE: CASE EVENT DATE: 201801
